FAERS Safety Report 7267265-2 (Version None)
Quarter: 2011Q1

REPORT INFORMATION
  Report Type: 
  Country: None (occurrence: None)
  Receive Date: 20110201
  Receipt Date: 20110124
  Transmission Date: 20110831
  Serious: Yes (Death, Hospitalization, Other)
  Sender: FDA-Public Use
  Company Number: DE-MPIJNJ-2010-00886

PATIENT

DRUGS (4)
  1. DEXAMETHASONE [Concomitant]
     Indication: MULTIPLE MYELOMA
     Dosage: 40 MG, UNK
     Route: 042
     Dates: start: 20091204, end: 20100111
  2. VELCADE [Suspect]
     Indication: MULTIPLE MYELOMA
     Dosage: 2.5 MG, UNK
     Route: 042
     Dates: start: 20091204, end: 20100111
  3. ZOFRAN [Concomitant]
     Indication: ANTIEMETIC SUPPORTIVE CARE
     Dosage: 8 MG, UNK
     Route: 042
     Dates: start: 20091207, end: 20100111
  4. ASPIRIN [Concomitant]
     Indication: CORONARY ARTERY DISEASE
     Dosage: 100 MG, UNK
     Route: 048
     Dates: start: 20091204, end: 20100116

REACTIONS (3)
  - SEPTIC SHOCK [None]
  - MYOCARDIAL INFARCTION [None]
  - AORTIC VALVE STENOSIS [None]
